FAERS Safety Report 6500541-7 (Version None)
Quarter: 2009Q4

REPORT INFORMATION
  Report Type: 
  Country: None (occurrence: None)
  Receive Date: 20091216
  Receipt Date: 20081101
  Transmission Date: 20100525
  Serious: No
  Sender: FDA-Public Use
  Company Number: A0754937A

PATIENT
  Sex: Male

DRUGS (1)
  1. COMMIT [Suspect]
     Indication: DRUG WITHDRAWAL MAINTENANCE THERAPY

REACTIONS (1)
  - INTENTIONAL DRUG MISUSE [None]
